FAERS Safety Report 4737133-6 (Version None)
Quarter: 2005Q3

REPORT INFORMATION
  Report Type: 
  Country: None (occurrence: None)
  Receive Date: 20050804
  Receipt Date: 20050728
  Transmission Date: 20060218
  Serious: Yes (Hospitalization, Other)
  Sender: FDA-Public Use
  Company Number: 2005-07-0128

PATIENT
  Age: 46 Year
  Sex: Male

DRUGS (8)
  1. TEMOXOL (TEMOZOLOMIDE) CAPSULES  (LIKE TEMODAR) [Suspect]
     Indication: GLIOBLASTOMA
     Dosage: 160 MG QD
     Dates: start: 20050509
  2. CO-TRIMOXAZOLE [Concomitant]
  3. DECADRON [Concomitant]
  4. FLIXONASE (FLUTICASONE PROPIONATE) [Concomitant]
  5. CLOPAMON (METOCLOPRAMIDE HCL) [Concomitant]
  6. KLACID (CLARITHROMYCIN) [Concomitant]
  7. MULTI-VITAMINS [Concomitant]
  8. CARVEDILOL [Concomitant]

REACTIONS (5)
  - HERPES OPHTHALMIC [None]
  - PNEUMONIA [None]
  - PNEUMONIA PRIMARY ATYPICAL [None]
  - PNEUMONITIS [None]
  - PULMONARY EMBOLISM [None]
